FAERS Safety Report 14731393 (Version 4)
Quarter: 2018Q3

REPORT INFORMATION
  Report Type: Spontaneous
  Country: DE (occurrence: DE)
  Receive Date: 20180407
  Receipt Date: 20180720
  Transmission Date: 20181010
  Serious: Yes (Hospitalization, Other)
  Sender: FDA-Public Use
  Company Number: DE-AUROBINDO-AUR-APL-2018-017927

PATIENT
  Age: 82 Year
  Sex: Female
  Weight: 56 kg

DRUGS (52)
  1. PANTOPRAZOLE [Suspect]
     Active Substance: PANTOPRAZOLE
     Dosage: 1 DF, QD
     Route: 065
  2. VALSARTAN. [Suspect]
     Active Substance: VALSARTAN
     Indication: PRODUCT USED FOR UNKNOWN INDICATION
     Route: 065
  3. HUMIRA [Suspect]
     Active Substance: ADALIMUMAB
     Indication: RHEUMATOID ARTHRITIS
     Dosage: ()
     Route: 058
     Dates: start: 20120111, end: 20160927
  4. SODIUM CHLORIDE. [Concomitant]
     Active Substance: SODIUM CHLORIDE
     Dosage: UNK UNK,QD ()
     Route: 065
  5. AMIODARONE [Suspect]
     Active Substance: AMIODARONE
     Indication: PRODUCT USED FOR UNKNOWN INDICATION
     Dosage: 200 MILLIGRAM, ONCE A DAY
     Route: 065
  6. PANTOPRAZOLE [Suspect]
     Active Substance: PANTOPRAZOLE
     Indication: PRODUCT USED FOR UNKNOWN INDICATION
     Dosage: DAILY DOSE: 20 MG MILLGRAM(S) EVERY DAYS
     Route: 065
  7. LIXIANA [Suspect]
     Active Substance: EDOXABAN TOSYLATE
     Indication: ATRIAL FIBRILLATION
     Dosage: 30 MG,QD
     Route: 065
     Dates: start: 20160930
  8. TORASEMID [Suspect]
     Active Substance: TORSEMIDE
     Indication: PRODUCT USED FOR UNKNOWN INDICATION
     Dosage: 5 MILLIGRAM
     Route: 065
  9. LOSARTAN COMP CT [Suspect]
     Active Substance: HYDROCHLOROTHIAZIDE\LOSARTAN POTASSIUM
     Indication: PRODUCT USED FOR UNKNOWN INDICATION
     Dosage: 100/25 MG
     Route: 065
     Dates: start: 2016
  10. ASPIRIN. [Suspect]
     Active Substance: ASPIRIN
     Route: 065
  11. VALSARTAN. [Suspect]
     Active Substance: VALSARTAN
     Indication: PRODUCT USED FOR UNKNOWN INDICATION
     Dosage: 160 MILLIGRAM
     Route: 065
  12. LIXIANA [Suspect]
     Active Substance: EDOXABAN TOSYLATE
     Route: 065
  13. TORASEMID [Suspect]
     Active Substance: TORSEMIDE
     Route: 065
  14. HUMIRA [Suspect]
     Active Substance: ADALIMUMAB
     Dosage: ()
     Route: 058
     Dates: start: 20161115
  15. HUMIRA [Suspect]
     Active Substance: ADALIMUMAB
     Dosage: (1)
     Route: 058
  16. VOLTARENE (DICLOFENAC SODIUM) [Suspect]
     Active Substance: DICLOFENAC SODIUM
     Indication: PRODUCT USED FOR UNKNOWN INDICATION
     Dosage: 2 DOSAGE FORM, ONCE A DAY
     Route: 065
     Dates: start: 201610
  17. SIMVASTATIN. [Suspect]
     Active Substance: SIMVASTATIN
     Indication: PRODUCT USED FOR UNKNOWN INDICATION
     Dosage: 40 MILLIGRAM
     Route: 065
  18. XIPAMID [Suspect]
     Active Substance: XIPAMIDE
     Indication: PRODUCT USED FOR UNKNOWN INDICATION
     Dosage: 20 MILLIGRAM
     Route: 065
  19. TORASEMID [Suspect]
     Active Substance: TORSEMIDE
     Dosage: 45 MG, QD
     Route: 065
     Dates: start: 20170124, end: 20170124
  20. TORASEMID [Suspect]
     Active Substance: TORSEMIDE
     Dosage: 15 MG, QD
     Route: 065
  21. SPASMEX                            /00376202/ [Suspect]
     Active Substance: TROSPIUM CHLORIDE
     Indication: PRODUCT USED FOR UNKNOWN INDICATION
     Dosage: 15 MG MILLGRAM(S) EVERY DAYS
     Route: 065
  22. SPASMEX                            /00376202/ [Suspect]
     Active Substance: TROSPIUM CHLORIDE
     Dosage: 45 MG MILLGRAM(S) EVERY DAYS
     Route: 065
     Dates: start: 20170124
  23. METOPROLOL SUCC CT [Suspect]
     Active Substance: METOPROLOL SUCCINATE
     Indication: PRODUCT USED FOR UNKNOWN INDICATION
     Route: 065
     Dates: end: 20170124
  24. HUMIRA [Suspect]
     Active Substance: ADALIMUMAB
     Dosage: UNK UNK,QOW
     Route: 058
     Dates: start: 20120411, end: 20160927
  25. FENTANYL. [Suspect]
     Active Substance: FENTANYL
     Indication: PRODUCT USED FOR UNKNOWN INDICATION
     Dosage: 75 MICROGRAM/HOUR AND PLASTER CHANGE EVERY 3 DAYS
     Route: 062
  26. MOVICOL [Suspect]
     Active Substance: POLYETHYLENE GLYCOL 3350\POTASSIUM CHLORIDE\SODIUM BICARBONATE\SODIUM CHLORIDE
     Indication: PRODUCT USED FOR UNKNOWN INDICATION
     Dosage: ()
     Route: 065
     Dates: start: 20170124
  27. BIFITERAL [Suspect]
     Active Substance: LACTULOSE
     Dosage: ()
     Route: 065
     Dates: end: 20170124
  28. SODIUM CHLORIDE. [Concomitant]
     Active Substance: SODIUM CHLORIDE
     Indication: PRODUCT USED FOR UNKNOWN INDICATION
     Dosage: 3
     Route: 065
  29. SODIUM CHLORIDE. [Concomitant]
     Active Substance: SODIUM CHLORIDE
     Dosage: (1)
     Route: 065
  30. RIOPAN                             /00141701/ [Concomitant]
     Active Substance: MAGALDRATE
     Indication: PRODUCT USED FOR UNKNOWN INDICATION
     Dosage: DAILY DOSE: 4800 MG MILLGRAM(S) EVERY DAYS
     Route: 048
  31. ASPIRIN. [Suspect]
     Active Substance: ASPIRIN
     Indication: PRODUCT USED FOR UNKNOWN INDICATION
     Dosage: 100 MG,UNK
     Route: 065
  32. SIMVASTATIN. [Suspect]
     Active Substance: SIMVASTATIN
     Route: 065
  33. BISOHEXAL [Suspect]
     Active Substance: BISOPROLOL FUMARATE
     Indication: PRODUCT USED FOR UNKNOWN INDICATION
     Dosage: 5 MILLIGRAM, ONCE A DAY
     Route: 065
     Dates: start: 2016
  34. DEKRISTOL [Suspect]
     Active Substance: CHOLECALCIFEROL
     Indication: PRODUCT USED FOR UNKNOWN INDICATION
     Dosage: 20000 IU INTERNATIONAL UNIT(S) EVERY WEEKS, (20000 IU,QW)
     Route: 065
  35. SPIRO COMP [Suspect]
     Active Substance: FUROSEMIDE\SPIRONOLACTONE
     Indication: PRODUCT USED FOR UNKNOWN INDICATION
     Dosage: 50MG/20MG (1)
     Route: 065
  36. SPIRO COMP [Suspect]
     Active Substance: FUROSEMIDE\SPIRONOLACTONE
     Dosage: 50MG/20MG ()
     Route: 065
     Dates: end: 201610
  37. SODIUM CHLORIDE. [Concomitant]
     Active Substance: SODIUM CHLORIDE
     Dosage: ()
  38. TOREM                              /01036501/ [Concomitant]
     Active Substance: TORSEMIDE
     Indication: PRODUCT USED FOR UNKNOWN INDICATION
     Dosage: DAILY DOSE: 5 MG MILLGRAM(S) EVERY DAYS
     Route: 065
  39. FRAXIPARIN [Concomitant]
     Active Substance: NADROPARIN CALCIUM
     Indication: PRODUCT USED FOR UNKNOWN INDICATION
     Dosage: DAILY DOSE: 5700 IU INTERNATIONAL UNIT(S) EVERY DAYS
     Route: 058
  40. DEKRISTOL [Suspect]
     Active Substance: CHOLECALCIFEROL
     Dosage: DAILY DOSE: 20000 IU INTERNATIONAL UNIT(S) EVERY WEEKS
     Route: 065
  41. LEVOSIMENDAN [Concomitant]
     Active Substance: LEVOSIMENDAN
     Indication: PRODUCT USED FOR UNKNOWN INDICATION
     Dosage: FOR 1.5 DAYS ()
     Route: 065
     Dates: start: 201611, end: 201611
  42. ENOXAPARIN [Concomitant]
     Active Substance: ENOXAPARIN
     Indication: PRODUCT USED FOR UNKNOWN INDICATION
     Dosage: DAILY DOSE: 0.6 MG MILLGRAM(S) EVERY DAYS
     Route: 065
  43. CORDAREX [Concomitant]
     Active Substance: AMIODARONE
     Indication: PRODUCT USED FOR UNKNOWN INDICATION
     Dosage: DAILY DOSE: 200 MG MILLGRAM(S) EVERY DAYS
     Route: 065
  44. PREDNISOLON                        /00016201/ [Suspect]
     Active Substance: PREDNISOLONE
     Indication: PRODUCT USED FOR UNKNOWN INDICATION
     Dosage: 5 MILLIGRAM
     Route: 065
  45. SPIRO COMP [Suspect]
     Active Substance: FUROSEMIDE\SPIRONOLACTONE
     Dosage: 1 DOSAGE FORM, ONCE A DAY
     Route: 065
     Dates: start: 201610
  46. SODIUM CHLORIDE. [Concomitant]
     Active Substance: SODIUM CHLORIDE
     Dosage: 3 DF, QD
     Route: 065
  47. ASPIRIN. [Suspect]
     Active Substance: ASPIRIN
     Indication: PRODUCT USED FOR UNKNOWN INDICATION
     Dosage: 100 MILLIGRAM
     Route: 065
  48. CLOPIDOGREL [Suspect]
     Active Substance: CLOPIDOGREL BISULFATE
     Indication: PRODUCT USED FOR UNKNOWN INDICATION
     Dosage: UNK
     Route: 048
     Dates: start: 20170124
  49. BIFITERAL [Suspect]
     Active Substance: LACTULOSE
     Indication: PRODUCT USED FOR UNKNOWN INDICATION
     Dosage: UNK
     Route: 065
     Dates: start: 20170124
  50. FOLIC ACID. [Concomitant]
     Active Substance: FOLIC ACID
     Indication: PRODUCT USED FOR UNKNOWN INDICATION
     Dosage: 5 MG,UNK
     Route: 065
     Dates: start: 20170124
  51. ENOXAPARIN [Concomitant]
     Active Substance: ENOXAPARIN
  52. FRAXIPARIN [Concomitant]
     Active Substance: NADROPARIN CALCIUM
     Dosage: DAILY DOSE: 5700 IU INTERNATIONAL UNIT(S) EVERY DAYS
     Route: 058

REACTIONS (53)
  - Hepatic cyst [Unknown]
  - Decreased appetite [Unknown]
  - Cardiovascular disorder [Unknown]
  - Hyperkalaemia [Unknown]
  - Arterial haemorrhage [Recovered/Resolved]
  - Myelodysplastic syndrome [Unknown]
  - Aortic arteriosclerosis [Unknown]
  - Cardiogenic shock [Unknown]
  - Vomiting [Unknown]
  - Seroma [Unknown]
  - Arthralgia [Unknown]
  - Urinary retention [Unknown]
  - Wound dehiscence [Recovered/Resolved]
  - Groin pain [Unknown]
  - Urinary tract infection [Unknown]
  - Lymphatic fistula [Recovered/Resolved]
  - Left ventricular dysfunction [Recovered/Resolved]
  - Gait disturbance [Unknown]
  - Hyponatraemia [Unknown]
  - Femoral hernia incarcerated [Recovered/Resolved]
  - Hiatus hernia [Unknown]
  - Faecaloma [Unknown]
  - Abdominal discomfort [Unknown]
  - Mitral valve incompetence [Unknown]
  - Dyspepsia [Unknown]
  - Dyspnoea [Unknown]
  - Joint dislocation [Recovered/Resolved]
  - Syncope [Unknown]
  - Tricuspid valve incompetence [Unknown]
  - Aortic valve stenosis [Unknown]
  - Peripheral swelling [Recovered/Resolved]
  - Diverticulum intestinal [Unknown]
  - Anaemia [Recovered/Resolved]
  - Eructation [Unknown]
  - Pulmonary hypertension [Unknown]
  - Acute kidney injury [Unknown]
  - Aplastic anaemia [Unknown]
  - Oedema peripheral [Unknown]
  - General physical health deterioration [Unknown]
  - Gastrointestinal haemorrhage [Recovered/Resolved]
  - Haematuria [Unknown]
  - Osteopenia [Unknown]
  - Haemarthrosis [Unknown]
  - Wound infection pseudomonas [Unknown]
  - Pancreatic steatosis [Unknown]
  - Escherichia infection [Unknown]
  - Myocardial infarction [Recovered/Resolved]
  - Tachyarrhythmia [Unknown]
  - Impaired healing [Recovered/Resolved]
  - Inflammatory marker increased [Recovered/Resolved]
  - Coronary artery disease [Unknown]
  - Postoperative wound infection [Recovered/Resolved]
  - Anuria [Recovered/Resolved]

NARRATIVE: CASE EVENT DATE: 201603
